FAERS Safety Report 4272256-X (Version None)
Quarter: 2004Q1

REPORT INFORMATION
  Report Type: 
  Country: None (occurrence: None)
  Receive Date: 20040114
  Receipt Date: 20040105
  Transmission Date: 20041129
  Serious: Yes (Hospitalization)
  Sender: FDA-Public Use
  Company Number: 2004193223FR

PATIENT
  Age: 73 Year
  Sex: Female

DRUGS (4)
  1. CELEBREX [Suspect]
     Indication: ARTHRALGIA
     Dosage: ORAL
     Route: 048
     Dates: start: 20031016, end: 20031107
  2. LEVOTHYROXINE SODIUM [Concomitant]
  3. INSULATARD NPH HUMAN [Concomitant]
  4. CO-APPROVEL [Concomitant]

REACTIONS (1)
  - COLITIS ISCHAEMIC [None]
